FAERS Safety Report 18626159 (Version 1)
Quarter: 2020Q4

REPORT INFORMATION
  Report Type: Spontaneous
  Country: DE (occurrence: DE)
  Receive Date: 20201216
  Receipt Date: 20201216
  Transmission Date: 20210114
  Serious: Yes (Other)
  Sender: FDA-Public Use
  Company Number: DE-ALSI-2020000532

PATIENT
  Age: 71 Year
  Sex: Male
  Weight: 85 kg

DRUGS (2)
  1. OFEV [Suspect]
     Active Substance: NINTEDANIB
  2. OXYGEN. [Suspect]
     Active Substance: OXYGEN
     Indication: PRODUCT USED FOR UNKNOWN INDICATION

REACTIONS (16)
  - Apathy [Unknown]
  - Food refusal [Unknown]
  - Abdominal pain [Unknown]
  - Joint swelling [Unknown]
  - Cardiac disorder [Unknown]
  - Feeling abnormal [Unknown]
  - Abdominal pain upper [Unknown]
  - Diarrhoea [Unknown]
  - Performance status decreased [Unknown]
  - Chest pain [Unknown]
  - Nausea [Unknown]
  - Gastrointestinal pain [Unknown]
  - Asthenia [Unknown]
  - Arthralgia [Unknown]
  - Flatulence [Unknown]
  - Weight decreased [Unknown]
